FAERS Safety Report 5450876-4 (Version None)
Quarter: 2007Q3

REPORT INFORMATION
  Report Type: 
  Country: None (occurrence: None)
  Receive Date: 20070913
  Receipt Date: 20070907
  Transmission Date: 20080115
  Serious: Yes (Other)
  Sender: FDA-Public Use
  Company Number: PHEH2007US12134

PATIENT
  Sex: Female
  Weight: 99.773 kg

DRUGS (4)
  1. DIOVAN [Suspect]
     Indication: HYPERTENSION
     Dosage: 320MG, UNK
  2. COREG [Suspect]
     Indication: HYPERTENSION
     Dosage: 40MG, UNK
  3. HYDROCHLOROTHIAZIDE [Suspect]
     Indication: HYPERTENSION
     Dosage: 25MG, UNK
  4. POTASSIUM CHLORIDE [Suspect]
     Indication: HYPERTENSION
     Dosage: 40MEQ, UNK

REACTIONS (6)
  - BLOOD CHOLESTEROL INCREASED [None]
  - DEPRESSION [None]
  - DIVERTICULUM [None]
  - HYPOTHYROIDISM [None]
  - OBESITY [None]
  - TYPE 2 DIABETES MELLITUS [None]
